FAERS Safety Report 7562015-4 (Version None)
Quarter: 2011Q2

REPORT INFORMATION
  Report Type: 
  Country: None (occurrence: None)
  Receive Date: 20110622
  Receipt Date: 20110615
  Transmission Date: 20111010
  Serious: Yes (Hospitalization)
  Sender: FDA-Public Use
  Company Number: NL-AMGEN-NLDSP2011020550

PATIENT
  Age: 38 Year
  Sex: Female
  Weight: 100 kg

DRUGS (5)
  1. ENBREL [Suspect]
     Indication: PRODUCT USED FOR UNKNOWN INDICATION
  2. ENBREL [Suspect]
     Indication: PSORIATIC ARTHROPATHY
     Dosage: 50 MG, WEEKLY
     Dates: start: 20110408
  3. METOPROLOL TARTRATE [Concomitant]
     Dosage: UNK
  4. OMEPRAZOLE [Concomitant]
  5. ARCOXIA [Concomitant]
     Dosage: UNK
     Dates: end: 20110401

REACTIONS (3)
  - SWELLING FACE [None]
  - ABDOMINAL PAIN [None]
  - BLEPHAROSPASM [None]
